FAERS Safety Report 5161062-X (Version None)
Quarter: 2006Q4

REPORT INFORMATION
  Report Type: 
  Country: None (occurrence: None)
  Receive Date: 20061121
  Receipt Date: 20061113
  Transmission Date: 20070319
  Serious: Yes (Other)
  Sender: FDA-Public Use
  Company Number: 2006RL000418

PATIENT
  Age: 58 Year
  Sex: Male

DRUGS (6)
  1. PROPAFENONE HCL [Suspect]
     Indication: ATRIAL FIBRILLATION
     Dosage: 650 MG; QD; PO
     Route: 048
     Dates: start: 20061015, end: 20061019
  2. PROPAFENONE HCL [Suspect]
     Indication: ATRIAL FLUTTER
     Dosage: 650 MG; QD; PO
     Route: 048
     Dates: start: 20061015, end: 20061019
  3. LACIDIPINUM (NO PREF. NAME) [Suspect]
     Indication: HYPERTENSION
     Dosage: 4 MG; QD; PO
     Route: 048
  4. TRANDOLAPRIL [Concomitant]
  5. CELIPROLOL [Concomitant]
  6. HYDROCHLORIDE [Concomitant]

REACTIONS (4)
  - ARRHYTHMIA [None]
  - BLOOD PRESSURE INCREASED [None]
  - HEADACHE [None]
  - HEART RATE INCREASED [None]
